FAERS Safety Report 15524327 (Version 1)
Quarter: 2018Q4

REPORT INFORMATION
  Report Type: Spontaneous
  Country: NL (occurrence: NL)
  Receive Date: 20181019
  Receipt Date: 20181019
  Transmission Date: 20190205
  Serious: Yes (Death)
  Sender: FDA-Public Use
  Company Number: NL-009507513-1810NLD007130

PATIENT
  Age: 51 Year
  Sex: Female
  Weight: 56 kg

DRUGS (2)
  1. LIPITOR [Concomitant]
     Active Substance: ATORVASTATIN CALCIUM
     Dosage: 40 MG, QD
     Route: 048
     Dates: start: 20030101, end: 20050301
  2. EZETROL [Suspect]
     Active Substance: EZETIMIBE
     Indication: HYPERCHOLESTEROLAEMIA
     Dosage: 10 MG ONCE DAILY ONE
     Route: 048
     Dates: start: 20040501, end: 20050301

REACTIONS (4)
  - Cholestasis [Fatal]
  - Biliary fibrosis [Fatal]
  - Vanishing bile duct syndrome [Fatal]
  - Death [Fatal]

NARRATIVE: CASE EVENT DATE: 20040901
